FAERS Safety Report 10187131 (Version 1)
Quarter: 2014Q2

REPORT INFORMATION
  Report Type: Spontaneous
  Country: US (occurrence: US)
  Receive Date: 20140522
  Receipt Date: 20140522
  Transmission Date: 20141212
  Serious: Yes (Other)
  Sender: FDA-Public Use
  Company Number: US-ACCORD-023776

PATIENT
  Age: 16 Year
  Sex: Female
  Weight: 71 kg

DRUGS (1)
  1. LEVETIRACETAM [Suspect]
     Indication: EPILEPSY
     Dosage: EXTENDED-RELEASE FORMULATION

REACTIONS (4)
  - Exposure during pregnancy [Unknown]
  - Drug clearance increased [Unknown]
  - Drug level below therapeutic [Unknown]
  - Convulsion [Unknown]
